FAERS Safety Report 7298682-2 (Version None)
Quarter: 2011Q1

REPORT INFORMATION
  Report Type: 
  Country: None (occurrence: None)
  Receive Date: 20110217
  Receipt Date: 20110215
  Transmission Date: 20110831
  Serious: Yes (Death)
  Sender: FDA-Public Use
  Company Number: CO-JNJFOC-20110204791

PATIENT
  Age: 6 Year
  Sex: Female

DRUGS (1)
  1. TOPAMAC [Suspect]
     Indication: EPILEPSY
     Route: 048

REACTIONS (1)
  - DEATH [None]
